FAERS Safety Report 17820584 (Version 1)
Quarter: 2020Q2

REPORT INFORMATION
  Report Type: Spontaneous
  Country: GB (occurrence: GB)
  Receive Date: 20200525
  Receipt Date: 20200525
  Transmission Date: 20200714
  Serious: Yes (Life-Threatening)
  Sender: FDA-Public Use
  Company Number: GB-ACCORD-183130

PATIENT
  Age: 87 Year

DRUGS (13)
  1. OMEPRAZOLE. [Concomitant]
     Active Substance: OMEPRAZOLE
  2. SALAMOL [Concomitant]
     Active Substance: ALBUTEROL
     Dosage: EASI-BREATHE INHALER ONE OR TWO PUFFS WHEN?REQUIRED - PT HAS METERED DOSE IHALER
  3. FUROSEMIDE. [Suspect]
     Active Substance: FUROSEMIDE
     Indication: CARDIAC FAILURE
     Dates: start: 20120918
  4. GENTAMICIN. [Suspect]
     Active Substance: GENTAMICIN
     Indication: BILIARY SEPSIS
     Dates: start: 20190912
  5. CALCICHEW D3 [Concomitant]
     Active Substance: CALCIUM\CHOLECALCIFEROL
  6. BETAHISTINE [Concomitant]
     Active Substance: BETAHISTINE
     Dosage: WITH MEALS
  7. LATANOPROST. [Concomitant]
     Active Substance: LATANOPROST
     Dosage: ONE DROP TO BE USED AT NIGHT (BOTH EYES). 50UG/ML
  8. LINAGLIPTIN [Concomitant]
     Active Substance: LINAGLIPTIN
  9. SPIRONOLACTONE. [Suspect]
     Active Substance: SPIRONOLACTONE
     Indication: CARDIAC FAILURE
     Dosage: MORNING
     Dates: start: 20190916
  10. PARACETAMOL [Concomitant]
     Active Substance: ACETAMINOPHEN
     Dosage: TWO TO BE TAKEN EVERY 4-6 HOURS UP TO FOUR?TIMES A DAY
  11. FOSTAIR [Concomitant]
     Active Substance: BECLOMETHASONE\FORMOTEROL
     Dosage: 100 MICROGRAMS/DOSE / 6MICROGRAMS/DOSE
     Route: 055
  12. DULOXETINE. [Concomitant]
     Active Substance: DULOXETINE
     Dosage: MORNING
  13. GENTAMICIN. [Suspect]
     Active Substance: GENTAMICIN
     Indication: BILIARY SEPSIS
     Dates: start: 20190914, end: 20190916

REACTIONS (3)
  - Antibiotic level above therapeutic [Unknown]
  - Acute kidney injury [Recovered/Resolved]
  - Inappropriate schedule of product administration [Unknown]

NARRATIVE: CASE EVENT DATE: 201909
